FAERS Safety Report 5058945-8 (Version None)
Quarter: 2006Q3

REPORT INFORMATION
  Report Type: 
  Country: None (occurrence: None)
  Receive Date: 20060721
  Receipt Date: 20060627
  Transmission Date: 20061208
  Serious: Yes (Other)
  Sender: FDA-Public Use
  Company Number: PHEH2006US08359

PATIENT
  Age: 4 Year
  Sex: Female
  Weight: 30.839 kg

DRUGS (2)
  1. TRILEPTAL [Suspect]
     Indication: COMPLEX PARTIAL SEIZURES
     Dosage: 420 MG, BID
     Route: 048
     Dates: start: 20051101, end: 20060201
  2. TRILEPTAL [Suspect]
     Dates: start: 20060301

REACTIONS (5)
  - AGGRESSION [None]
  - EPILEPSY [None]
  - OBESITY [None]
  - SWELLING FACE [None]
  - WEIGHT INCREASED [None]
